FAERS Safety Report 10892651 (Version 1)
Quarter: 2015Q1

REPORT INFORMATION
  Report Type: Spontaneous
  Country: IN (occurrence: IN)
  Receive Date: 20150306
  Receipt Date: 20150306
  Transmission Date: 20150721
  Serious: Yes (Other)
  Sender: FDA-Public Use
  Company Number: PHHY2015IN022893

PATIENT
  Age: 50 Year
  Sex: Female

DRUGS (2)
  1. DEXAMETHASONE. [Suspect]
     Active Substance: DEXAMETHASONE
     Indication: PRODUCT USED FOR UNKNOWN INDICATION
     Route: 065
  2. HYDROCORTISONE. [Concomitant]
     Active Substance: HYDROCORTISONE
     Indication: ADRENAL INSUFFICIENCY
     Dosage: 100 MG, UNK
     Route: 040

REACTIONS (8)
  - Adrenal insufficiency [Unknown]
  - Skin striae [Unknown]
  - Adrenocortical insufficiency acute [Unknown]
  - Hirsutism [Unknown]
  - Lipohypertrophy [Unknown]
  - Cushingoid [Unknown]
  - Intentional product misuse [Unknown]
  - Hypotension [Unknown]
